FAERS Safety Report 8342111-4 (Version None)
Quarter: 2012Q2

REPORT INFORMATION
  Report Type: 
  Country: None (occurrence: None)
  Receive Date: 20120507
  Receipt Date: 20120504
  Transmission Date: 20120825
  Serious: No
  Sender: FDA-Public Use
  Company Number: US-PFIZER INC-2012110357

PATIENT
  Sex: Female

DRUGS (1)
  1. NICOTROL [Suspect]
     Dosage: UNK
     Route: 055

REACTIONS (5)
  - MALAISE [None]
  - SALIVARY HYPERSECRETION [None]
  - HEADACHE [None]
  - DIZZINESS [None]
  - ILL-DEFINED DISORDER [None]
